FAERS Safety Report 14646749 (Version 2)
Quarter: 2021Q4

REPORT INFORMATION
  Report Type: Spontaneous
  Country: US (occurrence: US)
  Receive Date: 20180316
  Receipt Date: 20211203
  Transmission Date: 20220304
  Serious: Yes (Disabling, Other)
  Sender: FDA-Public Use
  Company Number: US-TEVA-2018-US-871654

PATIENT
  Age: 50 Year
  Sex: Female

DRUGS (24)
  1. DOCETAXEL [Suspect]
     Active Substance: DOCETAXEL
     Indication: Breast cancer female
     Dosage: DOSE: 75 MG/M2, 6 CYCLES WITH FREQUENCY EVERY 3 WEEKS
     Route: 042
     Dates: start: 20151026, end: 20160208
  2. CARBOPLATIN [Suspect]
     Active Substance: CARBOPLATIN
     Indication: Breast cancer female
     Dosage: DOSE: AUC 6 IV Q 21 DAYS, 6 CYCLES WITH FREQUENCY EVERY 3 WEEKS
     Route: 042
     Dates: start: 20151026, end: 20160208
  3. DOCETAXEL [Suspect]
     Active Substance: DOCETAXEL
     Indication: Breast cancer female
     Dosage: DOSE: 146.2 MG, 6 CYCLES WITH FREQUENCY EVERY 3 WEEKS
     Route: 065
     Dates: start: 20151026, end: 20160208
  4. HERCEPTIN [Suspect]
     Active Substance: TRASTUZUMAB
     Indication: Breast cancer female
     Dosage: DOSE: 8 MG/KG FOR CYCLE 1 ONLY
     Route: 042
     Dates: start: 20151026, end: 20151026
  5. HERCEPTIN [Suspect]
     Active Substance: TRASTUZUMAB
     Dosage: DOSE: 6 MG/KG FROM CYCLE 2-6
     Route: 042
     Dates: start: 20151116, end: 20161018
  6. PERJETA [Suspect]
     Active Substance: PERTUZUMAB
     Indication: Breast cancer female
     Dosage: DOSE: 840 MG, CYCLE ONE ONLY, EVERY 3 WEEKS
     Route: 042
     Dates: start: 20151026, end: 20151026
  7. PERJETA [Suspect]
     Active Substance: PERTUZUMAB
     Dosage: DOSE: 420 MG, CYCLE 2-6, EVERY 3 WEEKS
     Route: 042
     Dates: start: 20151116, end: 20160208
  8. HUMALOG [Concomitant]
     Active Substance: INSULIN LISPRO
     Route: 065
     Dates: start: 20100101
  9. CYMBALTA [Concomitant]
     Active Substance: DULOXETINE HYDROCHLORIDE
     Dosage: 60 MILLIGRAM DAILY;
     Route: 048
     Dates: start: 20080101
  10. LETROZOLE [Concomitant]
     Active Substance: LETROZOLE
     Route: 065
  11. ZOCOR [Concomitant]
     Active Substance: SIMVASTATIN
     Dosage: 40 MILLIGRAM DAILY;
     Route: 048
  12. SEROQUEL [Concomitant]
     Active Substance: QUETIAPINE FUMARATE
     Dosage: 25 MILLIGRAM DAILY;
     Route: 048
     Dates: start: 20150925
  13. LAMICTAL [Concomitant]
     Active Substance: LAMOTRIGINE
     Dosage: 100 MILLIGRAM DAILY;
     Route: 048
     Dates: start: 20150925
  14. LAMICTAL [Concomitant]
     Active Substance: LAMOTRIGINE
     Dosage: 150 MILLIGRAM DAILY;
     Route: 048
  15. GABAPENTIN [Concomitant]
     Active Substance: GABAPENTIN
     Dosage: 100 MILLIGRAM DAILY;
     Route: 048
  16. LEVEMIR [Concomitant]
     Active Substance: INSULIN DETEMIR
     Dosage: 100 UNIT/ML AS PER INSULIN SLIDING SCALE PROTOCOL
     Route: 058
     Dates: start: 20150925
  17. lnvokana [Concomitant]
     Dosage: 100 MILLIGRAM DAILY;
     Route: 048
     Dates: start: 20150925
  18. LORAZEPAM [Concomitant]
     Active Substance: LORAZEPAM
     Indication: Anxiety
     Dosage: 1-2 TABLETS EVRY 8 HOURS PRN
     Route: 048
     Dates: start: 20150925
  19. COMPAZINE [Concomitant]
     Active Substance: PROCHLORPERAZINE MALEATE
     Indication: Nausea
     Dosage: 40 MILLIGRAM DAILY;
     Route: 048
  20. MIRALAX [Concomitant]
     Active Substance: POLYETHYLENE GLYCOL 3350
     Dosage: 17 GRAM/DOSE, ONE DOSE TWICE A DAY
     Route: 048
     Dates: start: 20151013
  21. ZOFRAN [Concomitant]
     Active Substance: ONDANSETRON HYDROCHLORIDE
     Indication: Nausea
     Route: 048
     Dates: start: 20150929
  22. DEXAMETHASONE [Concomitant]
     Active Substance: DEXAMETHASONE
     Indication: Breast cancer female
     Dosage: 8 MILLIGRAM DAILY; AM AND PM WITH FOOD THE DAY BEFORE AND DAY AFTER EACH CHEMOTHERAPY CYCLE
     Route: 048
     Dates: start: 20151021
  23. NEULASTA [Concomitant]
     Active Substance: PEGFILGRASTIM
     Indication: Breast cancer female
     Dosage: 6 MG INJECTION DAY 2 OF EACH CYCLE
     Route: 065
  24. CANNABIS SATIVA SUBSP. INDICA TOP [Concomitant]
     Active Substance: CANNABIS SATIVA SUBSP. INDICA TOP
     Route: 065

REACTIONS (27)
  - Alopecia areata [Not Recovered/Not Resolved]
  - Madarosis [Not Recovered/Not Resolved]
  - Neuropathy peripheral [Recovering/Resolving]
  - Hair texture abnormal [Not Recovered/Not Resolved]
  - Hair colour changes [Not Recovered/Not Resolved]
  - Nausea [Recovering/Resolving]
  - Diarrhoea [Recovered/Resolved]
  - Mucosal inflammation [Unknown]
  - Myalgia [Recovered/Resolved]
  - Stomatitis [Recovering/Resolving]
  - Oropharyngeal pain [Recovering/Resolving]
  - Headache [Unknown]
  - Anxiety [Unknown]
  - Rash [Not Recovered/Not Resolved]
  - Rash erythematous [Not Recovered/Not Resolved]
  - Rash pruritic [Recovered/Resolved]
  - Bronchitis [Recovered/Resolved]
  - Stomatitis [Unknown]
  - Dermatitis [Unknown]
  - Fatigue [Not Recovered/Not Resolved]
  - Asthenia [Not Recovered/Not Resolved]
  - Peripheral swelling [Unknown]
  - Dyspepsia [Unknown]
  - Musculoskeletal pain [Unknown]
  - Fluid retention [Unknown]
  - Joint swelling [Not Recovered/Not Resolved]
  - Vomiting [Recovered/Resolved]

NARRATIVE: CASE EVENT DATE: 20150101
